FAERS Safety Report 4465117-4 (Version None)
Quarter: 2004Q4

REPORT INFORMATION
  Report Type: 
  Country: None (occurrence: None)
  Receive Date: 20041004
  Receipt Date: 20040929
  Transmission Date: 20050328
  Serious: Yes (Hospitalization)
  Sender: FDA-Public Use
  Company Number: PHBS2004JP12940

PATIENT
  Age: 33 Year
  Sex: Female
  Weight: 29 kg

DRUGS (7)
  1. VOLTAREN [Suspect]
     Indication: FRACTURE
     Route: 048
     Dates: start: 19971201
  2. FUROSEMIDE [Suspect]
     Dosage: 40 MG/DAY
     Dates: start: 19950101, end: 19970101
  3. FUROSEMIDE [Suspect]
     Dosage: 40 MG/DAY
     Dates: start: 19970601
  4. LAXATIVES [Suspect]
  5. GLYCYRRHIZIN [Concomitant]
     Dates: start: 19941001
  6. SPIRONOLACTONE [Concomitant]
     Dates: start: 19970101
  7. POTASSIUM CHLORIDE [Concomitant]
     Dates: start: 19970101

REACTIONS (1)
  - RENAL FAILURE CHRONIC [None]
